FAERS Safety Report 4381302-4 (Version None)
Quarter: 2004Q2

REPORT INFORMATION
  Report Type: 
  Country: None (occurrence: None)
  Receive Date: 20040617
  Receipt Date: 20040617
  Transmission Date: 20050107
  Serious: Yes (Hospitalization)
  Sender: FDA-Public Use
  Company Number: None

PATIENT
  Sex: Male

DRUGS (2)
  1. BUPROPION HCL [Suspect]
     Indication: ATTENTION DEFICIT/HYPERACTIVITY DISORDER
     Dosage: 100 MG BID PO
     Route: 048
  2. BUPROPION HCL [Suspect]
     Indication: DEPRESSION
     Dosage: 100 MG BID PO
     Route: 048

REACTIONS (2)
  - RASH [None]
  - SERUM SICKNESS [None]
